FAERS Safety Report 6959098-9 (Version None)
Quarter: 2010Q3

REPORT INFORMATION
  Report Type: 
  Country: None (occurrence: None)
  Receive Date: 20100831
  Receipt Date: 20100824
  Transmission Date: 20110219
  Serious: Yes (Hospitalization)
  Sender: FDA-Public Use
  Company Number: US-ABBOTT-10P-163-0665999-00

PATIENT
  Sex: Female
  Weight: 59.928 kg

DRUGS (4)
  1. HUMIRA [Suspect]
     Indication: CROHN'S DISEASE
     Route: 058
     Dates: start: 20100101, end: 20100501
  2. HUMIRA [Suspect]
     Dosage: LOADING DOSE
     Route: 058
     Dates: start: 20100822
  3. HUMIRA [Suspect]
     Route: 058
     Dates: start: 20100101, end: 20100501
  4. IMODIUM [Concomitant]
     Indication: CROHN'S DISEASE

REACTIONS (1)
  - FISTULA [None]
